FAERS Safety Report 16460348 (Version 4)
Quarter: 2019Q3

REPORT INFORMATION
  Report Type: Spontaneous
  Country: US (occurrence: US)
  Receive Date: 20190620
  Receipt Date: 20190809
  Transmission Date: 20191004
  Serious: No
  Sender: FDA-Public Use
  Company Number: US-PFIZER INC-2019256588

PATIENT
  Age: 58 Year
  Sex: Female
  Weight: 90 kg

DRUGS (4)
  1. HUMALOG [Concomitant]
     Active Substance: INSULIN LISPRO
  2. GENOTROPIN [Suspect]
     Active Substance: SOMATROPIN
     Dosage: 0.6 MG, DAILY (.6MG INJECTION ADMINISTERED EVERY OTHER DAY)
     Dates: start: 201903
  3. GENOTROPIN [Suspect]
     Active Substance: SOMATROPIN
     Indication: GROWTH HORMONE DEFICIENCY
     Dosage: 0.6 MG, DAILY (0.6 MG INJECTION ADMINISTERED EVERY DAY)
     Dates: start: 201903
  4. GENOTROPIN [Suspect]
     Active Substance: SOMATROPIN
     Dosage: UNK (126 EVERY 3 DAYS)

REACTIONS (4)
  - Poor quality product administered [Not Recovered/Not Resolved]
  - Diarrhoea [Not Recovered/Not Resolved]
  - Wrong technique in device usage process [Not Recovered/Not Resolved]
  - Vomiting [Not Recovered/Not Resolved]

NARRATIVE: CASE EVENT DATE: 201903
